FAERS Safety Report 17426479 (Version 1)
Quarter: 2020Q1

REPORT INFORMATION
  Report Type: Spontaneous
  Country: CH (occurrence: CH)
  Receive Date: 20200217
  Receipt Date: 20200217
  Transmission Date: 20200409
  Serious: Yes (Hospitalization)
  Sender: FDA-Public Use
  Company Number: CH-PFIZER INC-2020065951

PATIENT
  Age: 53 Year
  Sex: Female
  Weight: 44 kg

DRUGS (9)
  1. PLAVIX [Concomitant]
     Active Substance: CLOPIDOGREL BISULFATE
     Dosage: 75 MG, 1X/DAY
     Route: 048
  2. ATORVASTATIN PFIZER [Suspect]
     Active Substance: ATORVASTATIN
     Indication: ARTERIOSCLEROSIS
     Dosage: 80 MG, 1X/DAY
     Route: 048
     Dates: end: 202001
  3. KEPPRA [Suspect]
     Active Substance: LEVETIRACETAM
     Indication: EPILEPSY
     Dosage: 1000 MG, 2X/DAY
     Route: 048
     Dates: end: 202001
  4. ESOMEP [ESOMEPRAZOLE MAGNESIUM] [Suspect]
     Active Substance: ESOMEPRAZOLE MAGNESIUM
     Indication: ARTERIOSCLEROSIS
     Dosage: 40 MG, DAILY
     Route: 048
     Dates: end: 202001
  5. KEPPRA [Suspect]
     Active Substance: LEVETIRACETAM
     Dosage: 250 MG, 2X/DAY
     Route: 048
     Dates: start: 202001
  6. DAFALGAN [Suspect]
     Active Substance: ACETAMINOPHEN
     Indication: EAR PAIN
     Dosage: 3 G, DAILY
     Route: 048
     Dates: start: 202001, end: 202001
  7. BILOL [Concomitant]
     Active Substance: BISOPROLOL
     Dosage: 5 MG, 1X/DAY
     Route: 048
  8. LAMICTAL [Suspect]
     Active Substance: LAMOTRIGINE
     Indication: EPILEPSY
     Dosage: 150 MG, DAILY (1.5X 100 MG )
     Route: 048
  9. DAFALGAN [Suspect]
     Active Substance: ACETAMINOPHEN
     Indication: RHINORRHOEA

REACTIONS (3)
  - Liver disorder [Recovering/Resolving]
  - Rhinorrhoea [Unknown]
  - Ear pain [Unknown]

NARRATIVE: CASE EVENT DATE: 202001
